FAERS Safety Report 13839679 (Version 2)
Quarter: 2018Q3

REPORT INFORMATION
  Report Type: Spontaneous
  Country: JP (occurrence: JP)
  Receive Date: 20170807
  Receipt Date: 20180827
  Transmission Date: 20181010
  Serious: Yes (Death, Hospitalization)
  Sender: FDA-Public Use
  Company Number: JP-BAYER-2017-143823

PATIENT
  Age: 76 Year
  Sex: Female

DRUGS (3)
  1. PRASUGREL. [Concomitant]
     Active Substance: PRASUGREL
     Dosage: 3.75 MG, UNK
     Route: 048
  2. BAYASPIRIN 100 MG [Suspect]
     Active Substance: ASPIRIN
     Dosage: 100 MG, UNK
     Route: 048
  3. LIMAPROST [Concomitant]
     Active Substance: LIMAPROST
     Dosage: 5 ?G, UNK
     Route: 048

REACTIONS (4)
  - Pulmonary alveolar haemorrhage [Fatal]
  - Hypoxia [Fatal]
  - Aspiration [Fatal]
  - Influenza [None]
